FAERS Safety Report 24442208 (Version 2)
Quarter: 2024Q4

REPORT INFORMATION
  Report Type: Spontaneous
  Country: CL (occurrence: CL)
  Receive Date: 20241016
  Receipt Date: 20241017
  Transmission Date: 20250115
  Serious: No
  Sender: ROCHE
  Company Number: CL-ROCHE-3535140

PATIENT
  Age: 2 Year
  Sex: Male
  Weight: 16.0 kg

DRUGS (2)
  1. HEMLIBRA [Suspect]
     Active Substance: EMICIZUMAB-KXWH
     Indication: Haemophilia A without inhibitors
     Dosage: MAINTAINCE SCHEME 30MG/1ML
     Route: 058
  2. HEMLIBRA [Suspect]
     Active Substance: EMICIZUMAB-KXWH
     Dosage: MAINTAINCE SCHEME 30MG/1ML
     Route: 058

REACTIONS (2)
  - Underdose [Unknown]
  - No adverse event [Unknown]
